FAERS Safety Report 6583314-9 (Version None)
Quarter: 2010Q1

REPORT INFORMATION
  Report Type: 
  Country: None (occurrence: None)
  Receive Date: 20100216
  Receipt Date: 20100212
  Transmission Date: 20100710
  Serious: Yes (Other)
  Sender: FDA-Public Use
  Company Number: CHPA2010US02927

PATIENT
  Age: 4 Year
  Sex: Female

DRUGS (1)
  1. TRIAMINIC SRT [Suspect]
     Dosage: 0.5 TSP, ONCE/SINGLE
     Route: 048
     Dates: start: 20100210, end: 20100210

REACTIONS (1)
  - CONVULSION [None]
